FAERS Safety Report 11366265 (Version 1)
Quarter: 2015Q3

REPORT INFORMATION
  Report Type: Spontaneous
  Country: JO (occurrence: JO)
  Receive Date: 20150811
  Receipt Date: 20150811
  Transmission Date: 20151125
  Serious: Yes (Other)
  Sender: FDA-Public Use
  Company Number: JO-FRESENIUS KABI-FK201503843

PATIENT
  Sex: Male

DRUGS (3)
  1. PROPRANOLOL HYDROCHLORIDE (MANUFACTURER UNKNOWN) (PROPRANOLOL HYDROCHLORIDE)? [Suspect]
     Active Substance: PROPRANOLOL HYDROCHLORIDE
     Indication: PRODUCT USED FOR UNKNOWN INDICATION
     Route: 065
  2. CARBIMAZOLE [Concomitant]
     Active Substance: CARBIMAZOLE
     Indication: PRODUCT USED FOR UNKNOWN INDICATION
     Route: 048
  3. AMLODIPINE [Suspect]
     Active Substance: AMLODIPINE BESYLATE
     Indication: HYPERTENSION
     Route: 048

REACTIONS (3)
  - Drug interaction [Recovered/Resolved]
  - Hypotension [Recovered/Resolved]
  - Hypertension [Recovered/Resolved]
